FAERS Safety Report 5367252-5 (Version None)
Quarter: 2007Q2

REPORT INFORMATION
  Report Type: 
  Country: None (occurrence: None)
  Receive Date: 20070620
  Receipt Date: 20070620
  Transmission Date: 20071010
  Serious: Yes (Other)
  Sender: FDA-Public Use
  Company Number: None

PATIENT
  Sex: Female
  Weight: 68.0396 kg

DRUGS (1)
  1. CITANEST PLAIN [Suspect]
     Indication: DENTAL CARIES
     Dosage: ~0.9 CC TOTAL INFILTRATION AROUND TEETH #23,11,27
     Dates: start: 20070424

REACTIONS (2)
  - POST PROCEDURAL COMPLICATION [None]
  - SWELLING FACE [None]
